FAERS Safety Report 6379189-3 (Version None)
Quarter: 2009Q3

REPORT INFORMATION
  Report Type: 
  Country: None (occurrence: None)
  Receive Date: 20090923
  Receipt Date: 20090923
  Transmission Date: 20100115
  Serious: Yes (Other)
  Sender: FDA-Public Use
  Company Number: None

PATIENT
  Sex: Female
  Weight: 58.9676 kg

DRUGS (2)
  1. LEVAQUIN [Suspect]
     Indication: DIVERTICULITIS
     Dosage: 750MG 5 DAYS BUCCAL; 500MG 30 DAYS BUCCAL
     Route: 002
     Dates: start: 20080726, end: 20080730
  2. LEVAQUIN [Suspect]
     Indication: DIVERTICULITIS
     Dosage: 750MG 5 DAYS BUCCAL; 500MG 30 DAYS BUCCAL
     Route: 002
     Dates: start: 20080730, end: 20080930

REACTIONS (2)
  - TENDONITIS [None]
  - TENOSYNOVITIS STENOSANS [None]
